FAERS Safety Report 7682567-3 (Version None)
Quarter: 2011Q3

REPORT INFORMATION
  Report Type: 
  Country: None (occurrence: None)
  Receive Date: 20110815
  Receipt Date: 20110805
  Transmission Date: 20111222
  Serious: Yes (Hospitalization, Other)
  Sender: FDA-Public Use
  Company Number: US-ASTELLAS-2011US004789

PATIENT

DRUGS (2)
  1. PROGRAF [Suspect]
     Indication: LIVER TRANSPLANT
     Dosage: 1 MG, BID
     Route: 048
     Dates: start: 20070113
  2. ANALGESICS [Concomitant]
     Indication: PAIN
     Dosage: UNK
     Route: 065

REACTIONS (4)
  - NEOPLASM MALIGNANT [None]
  - DELAYED RECOVERY FROM ANAESTHESIA [None]
  - COMA [None]
  - SURGERY [None]
